FAERS Safety Report 4754545-5 (Version None)
Quarter: 2005Q3

REPORT INFORMATION
  Report Type: 
  Country: None (occurrence: None)
  Receive Date: 20050825
  Receipt Date: 20050825
  Transmission Date: 20060218
  Serious: Yes (Other)
  Sender: FDA-Public Use
  Company Number: None

PATIENT
  Age: 38 Year
  Sex: Female
  Weight: 113.3993 kg

DRUGS (2)
  1. LUNESTA [Suspect]
     Indication: PAIN
     Dosage: 1   BEDTIME PO
     Route: 048
  2. LUNESTA [Suspect]
     Indication: SLEEP DISORDER
     Dosage: 1   BEDTIME PO
     Route: 048

REACTIONS (2)
  - DRUG DEPENDENCE [None]
  - PHARMACEUTICAL PRODUCT COMPLAINT [None]
